FAERS Safety Report 6869460-0 (Version None)
Quarter: 2010Q3

REPORT INFORMATION
  Report Type: 
  Country: None (occurrence: None)
  Receive Date: 20100722
  Receipt Date: 20080917
  Transmission Date: 20110219
  Serious: No
  Sender: FDA-Public Use
  Company Number: US-PFIZER INC-2008062925

PATIENT
  Sex: Female

DRUGS (15)
  1. CHANTIX [Suspect]
     Indication: SMOKING CESSATION THERAPY
     Dates: start: 20080601
  2. ELAVIL [Concomitant]
  3. EVISTA [Concomitant]
  4. KLONOPIN [Concomitant]
  5. LAMICTAL [Concomitant]
  6. NEURONTIN [Concomitant]
  7. NIASPAN [Concomitant]
  8. QUININE SULFATE [Concomitant]
  9. TOPAMAX [Concomitant]
  10. RIFAXIMIN [Concomitant]
  11. ACETYLSALICYLIC ACID [Concomitant]
  12. FISH OIL [Concomitant]
  13. ZINC [Concomitant]
  14. METHADONE HCL [Concomitant]
  15. PERCOCET [Concomitant]

REACTIONS (2)
  - ABNORMAL DREAMS [None]
  - DEPRESSION [None]
